FAERS Safety Report 8891150 (Version 1)
Quarter: 2012Q4

REPORT INFORMATION
  Report Type: 
  Country: SE (occurrence: SE)
  Receive Date: 20121107
  Receipt Date: 20121107
  Transmission Date: 20130627
  Serious: Yes (Hospitalization)
  Sender: FDA-Public Use
  Company Number: SE-PFIZER INC-2012270845

PATIENT
  Age: 32 Year
  Sex: Female
  Weight: 99.2 kg

DRUGS (8)
  1. GENOTROPIN [Suspect]
     Indication: GROWTH HORMONE DEFICIENCY
     Dosage: 0.4 mg, 1x/day, 7 injections/week
     Route: 058
     Dates: start: 20091001
  2. HYDROCORTISONE [Concomitant]
     Indication: ADRENAL INSUFFICIENCY
     Dosage: UNK
     Dates: start: 20071207
  3. PULMICORT [Concomitant]
     Indication: ASTHMA
     Dosage: UNK
     Dates: start: 20080416
  4. PANODIL FORTE [Concomitant]
     Dosage: UNK
     Dates: start: 20080522
  5. FEMASEKVENS [Concomitant]
     Indication: HYPOGONADISM
     Dosage: UNK
     Dates: start: 20080602
  6. LEVOTHYROXINE [Concomitant]
     Indication: HYPOTHYROIDISM
     Dosage: UNK
     Dates: start: 20080930
  7. MINIRIN [Concomitant]
     Indication: DIABETES INSIPIDUS
     Dosage: UNK
     Dates: start: 20080930
  8. PRONAXEN [Concomitant]
     Indication: PAIN
     Dosage: UNK
     Dates: start: 20090119

REACTIONS (1)
  - Blood sodium decreased [Unknown]
